FAERS Safety Report 4613164-1 (Version None)
Quarter: 2005Q1

REPORT INFORMATION
  Report Type: 
  Country: None (occurrence: None)
  Receive Date: 20050316
  Receipt Date: 20050223
  Transmission Date: 20050727
  Serious: Yes (Hospitalization)
  Sender: FDA-Public Use
  Company Number: USA030948579

PATIENT
  Age: 44 Year
  Sex: Female

DRUGS (3)
  1. ZYPREXA [Suspect]
     Indication: BIPOLAR DISORDER
     Dosage: 10 MG DAY
     Dates: start: 20030701
  2. SYNTHROID [Concomitant]
  3. AMBIEN [Concomitant]

REACTIONS (10)
  - ABDOMINAL PAIN [None]
  - ANGIOPATHY [None]
  - BLOOD CHOLESTEROL INCREASED [None]
  - GALLBLADDER DISORDER [None]
  - GAMMA-GLUTAMYLTRANSFERASE INCREASED [None]
  - HIGH DENSITY LIPOPROTEIN INCREASED [None]
  - LOW DENSITY LIPOPROTEIN INCREASED [None]
  - MALAISE [None]
  - RENAL PAIN [None]
  - WEIGHT INCREASED [None]
